FAERS Safety Report 5518440-6 (Version None)
Quarter: 2007Q4

REPORT INFORMATION
  Report Type: 
  Country: None (occurrence: None)
  Receive Date: 20071115
  Receipt Date: 20071102
  Transmission Date: 20080405
  Serious: Yes (Other)
  Sender: FDA-Public Use
  Company Number: US-ELI_LILLY_AND_COMPANY-US200709004638

PATIENT
  Sex: Female
  Weight: 92.063 kg

DRUGS (3)
  1. EVISTA [Suspect]
     Indication: OSTEOPOROSIS
     Dosage: 60 MG, DAILY (1/D)
     Route: 048
  2. VERAPAMIL [Concomitant]
     Dosage: 240 MG, DAILY (1/D)
  3. COZAAR [Concomitant]
     Dosage: 100 MG, DAILY (1/D)

REACTIONS (2)
  - ENDOMETRIAL CANCER STAGE II [None]
  - INTRADUCTAL PAPILLOMA OF BREAST [None]
